FAERS Safety Report 7655873-6 (Version None)
Quarter: 2011Q3

REPORT INFORMATION
  Report Type: 
  Country: None (occurrence: None)
  Receive Date: 20110729
  Receipt Date: 20110725
  Transmission Date: 20111222
  Serious: Yes (Death, Other)
  Sender: FDA-Public Use
  Company Number: 2003-08-2742

PATIENT
  Age: 50 Year
  Sex: Male

DRUGS (6)
  1. PEG-INTRON [Suspect]
     Indication: HEPATITIS C
     Dosage: 150 MCG, QW, SC
     Route: 058
     Dates: start: 20021001, end: 20030822
  2. REBETOL [Suspect]
     Indication: HEPATITIS C
     Dosage: 1200 MG, QD, PO
     Route: 048
     Dates: start: 20021001
  3. IBUPROFEN [Concomitant]
  4. PRILOSEC [Concomitant]
  5. KLONOPIN [Concomitant]
  6. WELLBUTRIN [Concomitant]

REACTIONS (3)
  - NASAL SEPTAL OPERATION [None]
  - TOXICOLOGIC TEST ABNORMAL [None]
  - METABOLIC DISORDER [None]
